FAERS Safety Report 12455350 (Version 1)
Quarter: 2016Q2

REPORT INFORMATION
  Report Type: Report from Study
  Country: CA (occurrence: CA)
  Receive Date: 20160610
  Receipt Date: 20160610
  Transmission Date: 20160815
  Serious: Yes (Other)
  Sender: FDA-Public Use
  Company Number: PHHY2015CA133383

PATIENT
  Age: 65 Year
  Sex: Male

DRUGS (3)
  1. MEKINIST [Suspect]
     Active Substance: TRAMETINIB DIMETHYL SULFOXIDE
     Dosage: DOSE REDUCED
     Route: 048
     Dates: start: 201602, end: 20160512
  2. TAFINLAR [Suspect]
     Active Substance: DABRAFENIB MESYLATE
     Indication: METASTATIC MALIGNANT MELANOMA
     Dosage: 150 MG, BID
     Route: 048
     Dates: start: 20150912
  3. MEKINIST [Suspect]
     Active Substance: TRAMETINIB DIMETHYL SULFOXIDE
     Indication: METASTATIC MALIGNANT MELANOMA
     Dosage: 2 MG, QD
     Route: 048
     Dates: start: 20150912, end: 201602

REACTIONS (8)
  - Sputum discoloured [Unknown]
  - Weight decreased [Unknown]
  - Tremor [Unknown]
  - Fatigue [Unknown]
  - Night sweats [Unknown]
  - Haemoptysis [Unknown]
  - Loss of consciousness [Unknown]
  - Chills [Unknown]

NARRATIVE: CASE EVENT DATE: 20151004
